FAERS Safety Report 7585757-3 (Version None)
Quarter: 2011Q3

REPORT INFORMATION
  Report Type: 
  Country: None (occurrence: None)
  Receive Date: 20110701
  Receipt Date: 20110622
  Transmission Date: 20111222
  Serious: Yes (Other)
  Sender: FDA-Public Use
  Company Number: JP-AMGEN-US394008

PATIENT
  Age: 60 Year
  Sex: Female
  Weight: 66 kg

DRUGS (6)
  1. VOLTAREN [Concomitant]
     Dosage: 50 MG, QD
     Route: 054
     Dates: start: 20021003
  2. FOLIC ACID [Concomitant]
     Dosage: 5 MG, QWK
     Route: 048
     Dates: start: 20081110, end: 20100125
  3. ENBREL [Suspect]
     Indication: RHEUMATOID ARTHRITIS
     Dosage: 25 MG, 2 TIMES/WK
     Route: 058
     Dates: start: 20090413, end: 20100117
  4. METHOTREXATE [Suspect]
     Indication: RHEUMATOID ARTHRITIS
     Dosage: 4 MG, QWK
     Route: 048
     Dates: start: 20081110, end: 20081201
  5. METHOTREXATE [Suspect]
     Dosage: 6 MG, QWK
     Route: 048
     Dates: start: 20081222, end: 20100125
  6. PREDNISOLONE [Suspect]
     Indication: RHEUMATOID ARTHRITIS
     Dosage: 2.5 MG, QD
     Route: 048
     Dates: start: 20021003, end: 20090803

REACTIONS (2)
  - ERYTHEMA [None]
  - PULMONARY SARCOIDOSIS [None]
